FAERS Safety Report 4828868-5 (Version None)
Quarter: 2005Q4

REPORT INFORMATION
  Report Type: 
  Country: None (occurrence: None)
  Receive Date: 20051014
  Receipt Date: 20050713
  Transmission Date: 20060501
  Serious: No
  Sender: FDA-Public Use
  Company Number: 2005SP001821

PATIENT
  Sex: Male

DRUGS (1)
  1. LUNESTA [Suspect]
     Dosage: 32 MG; 1X; ORAL
     Route: 048
     Dates: start: 20050713

REACTIONS (3)
  - CHEST PAIN [None]
  - HEART RATE INCREASED [None]
  - OVERDOSE [None]
